FAERS Safety Report 4752619-6 (Version None)
Quarter: 2005Q3

REPORT INFORMATION
  Report Type: 
  Country: None (occurrence: None)
  Receive Date: 20050824
  Receipt Date: 20050815
  Transmission Date: 20060218
  Serious: Yes (Other)
  Sender: FDA-Public Use
  Company Number: 2005076532

PATIENT
  Age: 63 Year
  Sex: Female
  Weight: 104.3273 kg

DRUGS (3)
  1. CELEBREX [Suspect]
     Indication: OSTEOARTHRITIS
     Dosage: 200 MG (200 MG, 1 IN 1 D), ORAL
     Route: 048
  2. PRILOSEC [Concomitant]
  3. PREMARIN [Concomitant]

REACTIONS (9)
  - ABASIA [None]
  - ARTHRALGIA [None]
  - B-CELL SMALL LYMPHOCYTIC LYMPHOMA [None]
  - CONDITION AGGRAVATED [None]
  - DIFFUSE LARGE B-CELL LYMPHOMA [None]
  - MANTLE CELL LYMPHOMA [None]
  - OEDEMA PERIPHERAL [None]
  - PAIN [None]
  - SPINDLE CELL SARCOMA [None]
